FAERS Safety Report 7142060-3 (Version None)
Quarter: 2010Q4

REPORT INFORMATION
  Report Type: 
  Country: None (occurrence: None)
  Receive Date: 20101207
  Receipt Date: 20101201
  Transmission Date: 20110411
  Serious: Yes (Other)
  Sender: FDA-Public Use
  Company Number: B0687679A

PATIENT
  Sex: Male

DRUGS (1)
  1. MALARONE [Suspect]
     Route: 065

REACTIONS (3)
  - ABNORMAL DREAMS [None]
  - HALLUCINATION [None]
  - HOMICIDAL IDEATION [None]
